FAERS Safety Report 7628313-0 (Version None)
Quarter: 2011Q3

REPORT INFORMATION
  Report Type: 
  Country: None (occurrence: None)
  Receive Date: 20110714
  Receipt Date: 20110629
  Transmission Date: 20111222
  Serious: Yes (Hospitalization)
  Sender: FDA-Public Use
  Company Number: 2011PV000035

PATIENT
  Age: 37 Year
  Sex: Female

DRUGS (6)
  1. METHOTREXATE [Suspect]
     Dosage: 3000 MG/M**2; IV
     Route: 042
  2. RITUXIMAB (RITUXIMAB) [Suspect]
     Dosage: 375 MG, M**2; IV
     Route: 042
     Dates: start: 20091102, end: 20100119
  3. FOLIC ACID [Suspect]
     Dosage: 200 MG/M**2; IV
     Route: 042
  4. CYTOSAR-U [Suspect]
     Dosage: 100 MG/M**2; IV
     Route: 042
     Dates: start: 20091104, end: 20100121
  5. MEDROL [Suspect]
     Dosage: 96 MG; IV
     Route: 042
     Dates: start: 20091103, end: 20100125
  6. DEPOCYT [Suspect]
     Indication: METASTASES TO MENINGES
     Dosage: 50 MG; INTH
     Route: 037
     Dates: start: 20091104, end: 20100121

REACTIONS (5)
  - DIABETIC KETOACIDOSIS [None]
  - FEBRILE NEUTROPENIA [None]
  - BLOOD CULTURE POSITIVE [None]
  - STAPHYLOCOCCUS TEST POSITIVE [None]
  - HERPES ZOSTER OPHTHALMIC [None]
